FAERS Safety Report 5744918-6 (Version None)
Quarter: 2008Q2

REPORT INFORMATION
  Report Type: 
  Country: None (occurrence: None)
  Receive Date: 20080516
  Receipt Date: 20080502
  Transmission Date: 20081010
  Serious: Yes (Other)
  Sender: FDA-Public Use
  Company Number: 2008S1006026

PATIENT
  Age: 34 Year
  Sex: Female

DRUGS (5)
  1. BICOR /00802602/ (BISOPROLOL FUMARATE) [Suspect]
     Indication: LEFT VENTRICULAR FAILURE
     Dosage: 1.25 MG; DAILY; ORAL, 2.5 MG; DAILY; ORAL, 1.25 MG; DAILY; ORAL
     Route: 048
     Dates: start: 20080122, end: 20080303
  2. BICOR /00802602/ (BISOPROLOL FUMARATE) [Suspect]
     Indication: LEFT VENTRICULAR FAILURE
     Dosage: 1.25 MG; DAILY; ORAL, 2.5 MG; DAILY; ORAL, 1.25 MG; DAILY; ORAL
     Route: 048
     Dates: start: 20080304, end: 20080311
  3. BICOR /00802602/ (BISOPROLOL FUMARATE) [Suspect]
     Indication: LEFT VENTRICULAR FAILURE
     Dosage: 1.25 MG; DAILY; ORAL, 2.5 MG; DAILY; ORAL, 1.25 MG; DAILY; ORAL
     Route: 048
     Dates: start: 20080318, end: 20080425
  4. MOGADON [Concomitant]
  5. SPIRIVA [Concomitant]

REACTIONS (11)
  - AGGRESSION [None]
  - ANXIETY [None]
  - DEPRESSION [None]
  - DIZZINESS [None]
  - HEADACHE [None]
  - HEARING IMPAIRED [None]
  - INSOMNIA [None]
  - IRRITABILITY [None]
  - PERSONALITY CHANGE [None]
  - TEARFULNESS [None]
  - VISUAL DISTURBANCE [None]
